FAERS Safety Report 5792782-1 (Version None)
Quarter: 2008Q2

REPORT INFORMATION
  Report Type: 
  Country: None (occurrence: None)
  Receive Date: 20080624
  Receipt Date: 20080612
  Transmission Date: 20081010
  Serious: Yes (Death, Hospitalization)
  Sender: FDA-Public Use
  Company Number: 2008BI014948

PATIENT
  Age: 54 Year
  Sex: Female
  Weight: 47.6277 kg

DRUGS (5)
  1. AVONEX [Suspect]
     Indication: MULTIPLE SCLEROSIS
     Dosage: 30 UG;QW;IM
     Route: 030
     Dates: start: 20070101
  2. TOPAMAX [Concomitant]
  3. FISH OIL [Concomitant]
  4. ASCORBIC ACID [Concomitant]
  5. MULTI-VITAMIN [Concomitant]

REACTIONS (4)
  - DISEASE COMPLICATION [None]
  - MULTIPLE SCLEROSIS [None]
  - PNEUMONIA [None]
  - PULMONARY EMBOLISM [None]
